FAERS Safety Report 10505184 (Version 2)
Quarter: 2014Q4

REPORT INFORMATION
  Report Type: Spontaneous
  Country: CN (occurrence: CN)
  Receive Date: 20141008
  Receipt Date: 20141021
  Transmission Date: 20150528
  Serious: Yes (Other)
  Sender: FDA-Public Use
  Company Number: CN-CUBIST PHARMACEUTICALS, INC.-2014CBST001385

PATIENT

DRUGS (9)
  1. LACTOBACILLUS RHAMNOSUS [Concomitant]
     Active Substance: LACTOBACILLUS RHAMNOSUS
     Indication: GASTROINTESTINAL INFECTION
     Dosage: 80 MG, QD
     Route: 065
  2. CUBICIN [Suspect]
     Active Substance: DAPTOMYCIN
     Indication: OFF LABEL USE
  3. CUBICIN [Suspect]
     Active Substance: DAPTOMYCIN
     Indication: GASTROINTESTINAL INFECTION
     Dosage: 8 MG/KG, QD
     Route: 048
     Dates: start: 20130925, end: 20130929
  4. LINEZOLID. [Concomitant]
     Active Substance: LINEZOLID
     Indication: GASTROINTESTINAL INFECTION
     Dosage: 600 MG, Q12H
     Route: 048
  5. LINEZOLID. [Concomitant]
     Active Substance: LINEZOLID
     Indication: ENTEROCOCCAL INFECTION
  6. LACTOBACILLUS RHAMNOSUS [Concomitant]
     Active Substance: LACTOBACILLUS RHAMNOSUS
     Indication: ENTEROCOCCAL INFECTION
  7. POLYETHYLENE GLYCOL [Concomitant]
     Active Substance: POLYETHYLENE GLYCOLS
     Indication: GASTROINTESTINAL INFECTION
     Dosage: 2 LITERS OF POLYETHYLENE GLYCOL (KLEAN PREP) OVER 6 HOURS
     Route: 048
  8. CUBICIN [Suspect]
     Active Substance: DAPTOMYCIN
     Indication: ENTEROCOCCAL INFECTION
  9. POLYETHYLENE GLYCOL [Concomitant]
     Active Substance: POLYETHYLENE GLYCOLS
     Indication: ENTEROCOCCAL INFECTION

REACTIONS (3)
  - Pyrexia [Unknown]
  - Klebsiella infection [Unknown]
  - Off label use [Unknown]
